FAERS Safety Report 13374488 (Version 21)
Quarter: 2021Q2

REPORT INFORMATION
  Report Type: Report from Study
  Country: None (occurrence: NL)
  Receive Date: 20170327
  Receipt Date: 20210613
  Transmission Date: 20210716
  Serious: Yes (Hospitalization)
  Sender: FDA-Public Use
  Company Number: NL-ABBVIE-16P-114-1607674-00

PATIENT
  Age: 66 Year
  Sex: Female
  Weight: 73 kg

DRUGS (12)
  1. DUODOPA [Suspect]
     Active Substance: CARBIDOPA\LEVODOPA
     Dosage: MD: 8.5, CD: 3.3, ED: 1.5; 16 HOUR ADMINISTRATION
     Route: 050
  2. DUODOPA [Suspect]
     Active Substance: CARBIDOPA\LEVODOPA
     Dosage: MD: 9 CD: 3.3, ED: 1.5; 16 HOUR ADMINISTRATION
     Route: 050
  3. SINEMET [Concomitant]
     Active Substance: CARBIDOPA\LEVODOPA
     Indication: PRODUCT USED FOR UNKNOWN INDICATION
     Dosage: IF NECESSARY
  4. DUODOPA [Suspect]
     Active Substance: CARBIDOPA\LEVODOPA
     Dosage: MD: 8.5, CD: 2.7, ED: 1.5
     Route: 050
  5. MACROGOL [Concomitant]
     Active Substance: POLYETHYLENE GLYCOLS
     Indication: STOOL ANALYSIS
  6. DUODOPA [Suspect]
     Active Substance: CARBIDOPA\LEVODOPA
     Indication: PARKINSON^S DISEASE
     Dosage: MD: 8.5, CD: 2.9, ED: 1.5
     Route: 050
     Dates: start: 20150907
  7. DUODOPA [Suspect]
     Active Substance: CARBIDOPA\LEVODOPA
     Dosage: CONTINUOUS DOSE WAS INCREASED WITH 0.1
     Route: 050
  8. EXELON [Concomitant]
     Active Substance: RIVASTIGMINE TARTRATE
     Indication: BRADYPHRENIA
  9. DUODOPA [Suspect]
     Active Substance: CARBIDOPA\LEVODOPA
     Dosage: MD: 9.0 ML, CD: 3.3 ML/H, ED: 1.5 ML
     Route: 050
  10. DUODOPA [Suspect]
     Active Substance: CARBIDOPA\LEVODOPA
     Dosage: MD 8.5ML CD 3.2ML/HR ED 1.5ML 16 HOUR ADMINISTRATION
     Route: 050
  11. CLOZAPINE. [Concomitant]
     Active Substance: CLOZAPINE
     Indication: HALLUCINATION
  12. DUODOPA [Suspect]
     Active Substance: CARBIDOPA\LEVODOPA
     Dosage: CD INCREASED TO 2.9ML
     Route: 050

REACTIONS (55)
  - Nocturia [Not Recovered/Not Resolved]
  - Nightmare [Not Recovered/Not Resolved]
  - Dyskinesia [Recovered/Resolved]
  - Impaired quality of life [Unknown]
  - Hallucination [Recovered/Resolved]
  - Abnormal dreams [Not Recovered/Not Resolved]
  - Aggression [Unknown]
  - Skin discolouration [Not Recovered/Not Resolved]
  - Pollakiuria [Not Recovered/Not Resolved]
  - Cognitive disorder [Unknown]
  - Visual impairment [Not Recovered/Not Resolved]
  - Malaise [Recovering/Resolving]
  - Fatigue [Not Recovered/Not Resolved]
  - Obsessive-compulsive disorder [Unknown]
  - Disturbance in attention [Unknown]
  - Muscle spasms [Not Recovered/Not Resolved]
  - Mobility decreased [Recovering/Resolving]
  - Restlessness [Not Recovered/Not Resolved]
  - Underdose [Not Recovered/Not Resolved]
  - Weight decreased [Recovered/Resolved]
  - Drug ineffective [Recovered/Resolved]
  - Insomnia [Recovering/Resolving]
  - Bradykinesia [Not Recovered/Not Resolved]
  - Therapeutic product effect incomplete [Unknown]
  - Stoma site erythema [Not Recovered/Not Resolved]
  - Urinary tract infection [Not Recovered/Not Resolved]
  - Psychotic disorder [Not Recovered/Not Resolved]
  - Product dose omission issue [Not Recovered/Not Resolved]
  - Incorrect route of product administration [Recovered/Resolved]
  - Memory impairment [Not Recovered/Not Resolved]
  - Dystonia [Not Recovered/Not Resolved]
  - On and off phenomenon [Recovered/Resolved]
  - Hallucination, visual [Recovered/Resolved]
  - Device occlusion [Unknown]
  - Bradyphrenia [Not Recovered/Not Resolved]
  - Stoma site inflammation [Not Recovered/Not Resolved]
  - Anxiety [Not Recovered/Not Resolved]
  - Muscular weakness [Not Recovered/Not Resolved]
  - Cognitive disorder [Not Recovered/Not Resolved]
  - Stoma site erythema [Recovered/Resolved]
  - Device issue [Unknown]
  - Constipation [Recovered/Resolved]
  - Stoma site discharge [Not Recovered/Not Resolved]
  - Speech disorder [Not Recovered/Not Resolved]
  - Pain in extremity [Not Recovered/Not Resolved]
  - Hyperhidrosis [Not Recovered/Not Resolved]
  - Tremor [Not Recovered/Not Resolved]
  - Confusional state [Not Recovered/Not Resolved]
  - Device dislocation [Unknown]
  - Hallucination [Recovered/Resolved]
  - Middle insomnia [Not Recovered/Not Resolved]
  - Dyskinesia [Not Recovered/Not Resolved]
  - Muscle rigidity [Not Recovered/Not Resolved]
  - Freezing phenomenon [Not Recovered/Not Resolved]
  - Unevaluable event [Not Recovered/Not Resolved]

NARRATIVE: CASE EVENT DATE: 201602
